FAERS Safety Report 5298934-1 (Version None)
Quarter: 2007Q2

REPORT INFORMATION
  Report Type: 
  Country: None (occurrence: None)
  Receive Date: 20070417
  Receipt Date: 20070404
  Transmission Date: 20071010
  Serious: Yes (Other)
  Sender: FDA-Public Use
  Company Number: PHNR2007AU00938

PATIENT
  Sex: Female

DRUGS (2)
  1. MORPHINE [Concomitant]
  2. ZOMETA [Suspect]
     Indication: MULTIPLE MYELOMA

REACTIONS (2)
  - OSTEONECROSIS [None]
  - TOOTHACHE [None]
